FAERS Safety Report 9421274 (Version 1)
Quarter: 2013Q3

REPORT INFORMATION
  Report Type: Spontaneous
  Country: DK (occurrence: DK)
  Receive Date: 20130725
  Receipt Date: 20130725
  Transmission Date: 20140515
  Serious: Yes (Hospitalization)
  Sender: FDA-Public Use
  Company Number: DK-ACTAVIS-2013-13012

PATIENT
  Age: 47 Year
  Sex: Female

DRUGS (2)
  1. EPIRUBICIN HYDROCHLORIDE (UNKNOWN) [Suspect]
     Indication: BREAST CANCER
     Dosage: UNK, UNKNOWN
     Route: 042
  2. VENLAFAXINE HYDROCHLORIDE (UNKNOWN) [Suspect]
     Indication: DEPRESSION
     Dosage: 75 MG, UNKNOWN
     Route: 048
     Dates: end: 20130606

REACTIONS (7)
  - Hypersensitivity [Recovered/Resolved]
  - Nausea [Recovered/Resolved]
  - Drug interaction [Recovered/Resolved]
  - Swollen tongue [Recovered/Resolved]
  - Dyspnoea [Recovered/Resolved]
  - Muscle contractions involuntary [Recovered/Resolved]
  - Hypertonia [Recovered/Resolved]
